FAERS Safety Report 7074679-2 (Version None)
Quarter: 2010Q4

REPORT INFORMATION
  Report Type: 
  Country: None (occurrence: None)
  Receive Date: 20101029
  Receipt Date: 20101021
  Transmission Date: 20110411
  Serious: Yes (Hospitalization)
  Sender: FDA-Public Use
  Company Number: B0681659A

PATIENT
  Age: 40 Year
  Sex: Male
  Weight: 70 kg

DRUGS (2)
  1. AUGMENTIN '125' [Suspect]
     Indication: TOOTHACHE
     Dosage: 2G PER DAY
     Route: 048
     Dates: start: 20100722, end: 20100725
  2. NISULID [Suspect]
     Indication: TOOTHACHE
     Dosage: 800MG PER DAY
     Route: 048
     Dates: start: 20100722, end: 20100725

REACTIONS (16)
  - BACK PAIN [None]
  - DYSPHAGIA [None]
  - LIP ULCERATION [None]
  - MUCOSAL ULCERATION [None]
  - ORAL PAIN [None]
  - PAIN IN EXTREMITY [None]
  - PENILE DISCHARGE [None]
  - PENILE PAIN [None]
  - RASH [None]
  - RASH GENERALISED [None]
  - RASH MACULAR [None]
  - RESPIRATORY DISORDER [None]
  - RESPIRATORY FATIGUE [None]
  - SKIN EROSION [None]
  - SKIN REACTION [None]
  - SKIN ULCER [None]
